FAERS Safety Report 5661713-7 (Version None)
Quarter: 2008Q1

REPORT INFORMATION
  Report Type: 
  Country: None (occurrence: None)
  Receive Date: 20080312
  Receipt Date: 20080303
  Transmission Date: 20080703
  Serious: Yes (Life-Threatening, Hospitalization)
  Sender: FDA-Public Use
  Company Number: B0507666A

PATIENT
  Age: 81 Year
  Sex: Female

DRUGS (5)
  1. ARTIST [Suspect]
     Indication: CARDIAC FAILURE
     Dosage: 3.75MG TWICE PER DAY
     Route: 048
     Dates: end: 20071227
  2. VEGETAMIN [Suspect]
     Indication: INSOMNIA
     Route: 048
     Dates: end: 20071227
  3. WARFARIN SODIUM [Concomitant]
     Dates: end: 20071227
  4. LASIX [Concomitant]
  5. DIGOXIN [Concomitant]
     Indication: TACHYCARDIA

REACTIONS (1)
  - GRANULOCYTE COUNT DECREASED [None]
